FAERS Safety Report 7283390-4 (Version None)
Quarter: 2011Q1

REPORT INFORMATION
  Report Type: 
  Country: None (occurrence: None)
  Receive Date: 20110209
  Receipt Date: 20100728
  Transmission Date: 20110831
  Serious: No
  Sender: FDA-Public Use
  Company Number: A0874112A

PATIENT

DRUGS (1)
  1. PAXIL [Suspect]
     Route: 048

REACTIONS (1)
  - DEPRESSION [None]
